FAERS Safety Report 12030400 (Version 1)
Quarter: 2016Q1

REPORT INFORMATION
  Report Type: Report from Study
  Country: US (occurrence: US)
  Receive Date: 20160207
  Receipt Date: 20160207
  Transmission Date: 20160526
  Serious: No
  Sender: FDA-Public Use
  Company Number: US-ABBVIE-15K-163-1504985-00

PATIENT
  Age: 58 Year
  Sex: Male

DRUGS (1)
  1. HUMIRA [Suspect]
     Active Substance: ADALIMUMAB
     Indication: HIDRADENITIS
     Route: 058
     Dates: start: 20151111, end: 20151111

REACTIONS (5)
  - Dry mouth [Unknown]
  - Upper respiratory tract infection [Unknown]
  - Loss of consciousness [Recovered/Resolved]
  - Rash [Unknown]
  - Dry throat [Unknown]

NARRATIVE: CASE EVENT DATE: 20151112
